FAERS Safety Report 20556736 (Version 2)
Quarter: 2022Q1

REPORT INFORMATION
  Report Type: Spontaneous
  Country: JP (occurrence: JP)
  Receive Date: 20220307
  Receipt Date: 20220318
  Transmission Date: 20220424
  Serious: Yes (Death, Other)
  Sender: FDA-Public Use
  Company Number: JP-BAYER-2022A029795

PATIENT
  Sex: Male

DRUGS (2)
  1. EYLEA [Suspect]
     Active Substance: AFLIBERCEPT
     Indication: Diabetic retinal oedema
     Dosage: 2MG(0.05ML), ONCE (LEFT EYE)
     Route: 031
     Dates: start: 20211208, end: 20211208
  2. EYLEA [Suspect]
     Active Substance: AFLIBERCEPT
     Dosage: 2MG(0.05ML), ONCE (RIGHT EYE)
     Route: 031
     Dates: start: 20211209, end: 20211209

REACTIONS (2)
  - Death [Fatal]
  - Physical deconditioning [Unknown]

NARRATIVE: CASE EVENT DATE: 20220131
